FAERS Safety Report 10167338 (Version 1)
Quarter: 2014Q2

REPORT INFORMATION
  Report Type: Spontaneous
  Country: US (occurrence: None)
  Receive Date: 20140509
  Receipt Date: 20140509
  Transmission Date: 20141212
  Serious: No
  Sender: FDA-Public Use
  Company Number: None

PATIENT
  Age: 79 Year
  Sex: Female

DRUGS (2)
  1. AFINITOR 5MG NOVARTIS [Suspect]
     Indication: BREAST CANCER
     Route: 048
     Dates: start: 20140315, end: 20140407
  2. EXEMESTANE [Concomitant]

REACTIONS (1)
  - Stomatitis [None]
